FAERS Safety Report 9636582 (Version 1)
Quarter: 2013Q4

REPORT INFORMATION
  Report Type: Spontaneous
  Country: AU (occurrence: AU)
  Receive Date: 20131021
  Receipt Date: 20131021
  Transmission Date: 20140711
  Serious: Yes (Hospitalization, Other)
  Sender: FDA-Public Use
  Company Number: AU-WATSON-2013-18223

PATIENT
  Age: 39 Year
  Sex: Female

DRUGS (3)
  1. DEXAMETHASONE (WATSON LABORATORIES) [Suspect]
     Indication: METASTASES TO CENTRAL NERVOUS SYSTEM
     Dosage: 16 MG, DAILY
     Route: 065
  2. DEXAMETHASONE (WATSON LABORATORIES) [Suspect]
     Dosage: 4 MG, DAILY
     Route: 065
  3. TRASTUZUMAB [Concomitant]
     Indication: METASTASES TO CENTRAL NERVOUS SYSTEM
     Dosage: UNK
     Route: 065

REACTIONS (1)
  - Pneumonia legionella [Recovered/Resolved with Sequelae]
